FAERS Safety Report 14754842 (Version 13)
Quarter: 2022Q3

REPORT INFORMATION
  Report Type: Spontaneous
  Country: GB (occurrence: GB)
  Receive Date: 20180413
  Receipt Date: 20220831
  Transmission Date: 20221027
  Serious: Yes (Hospitalization, Other)
  Sender: FDA-Public Use
  Company Number: GB-MHRA-EYC 00174086

PATIENT
  Age: 86 Year
  Sex: Female

DRUGS (166)
  1. CANDESARTAN [Suspect]
     Active Substance: CANDESARTAN
     Indication: Cerebrovascular accident prophylaxis
     Dosage: 2 MILLIGRAM, QD
     Route: 048
  2. CANDESARTAN [Suspect]
     Active Substance: CANDESARTAN
     Dosage: UNK
     Route: 065
  3. CANDESARTAN [Suspect]
     Active Substance: CANDESARTAN
     Dosage: 2 MILLIGRAM, QD
     Route: 065
  4. CANDESARTAN [Suspect]
     Active Substance: CANDESARTAN
     Dosage: 2 MILLIGRAM, QD
     Route: 065
  5. CANDESARTAN [Suspect]
     Active Substance: CANDESARTAN
     Dosage: 2 MILLIGRAM, QD
     Route: 048
  6. CANDESARTAN [Suspect]
     Active Substance: CANDESARTAN
     Dosage: 2 MILLIGRAM, QD
     Route: 048
  7. CANDESARTAN [Suspect]
     Active Substance: CANDESARTAN
     Dosage: 2 MILLIGRAM, QD
     Route: 048
  8. LANSOPRAZOLE [Suspect]
     Active Substance: LANSOPRAZOLE
     Indication: Atrial fibrillation
     Dosage: 30 MILLIGRAM, QD
     Route: 065
  9. LANSOPRAZOLE [Suspect]
     Active Substance: LANSOPRAZOLE
     Dosage: 10 MILLIGRAM, QD
     Route: 065
     Dates: start: 20180207, end: 20180207
  10. LANSOPRAZOLE [Suspect]
     Active Substance: LANSOPRAZOLE
     Dosage: 10 MILLIGRAM, QD
     Route: 065
     Dates: start: 20180207, end: 20180207
  11. LANSOPRAZOLE [Suspect]
     Active Substance: LANSOPRAZOLE
     Dosage: 30 MILLIGRAM, QD
     Route: 065
  12. LANSOPRAZOLE [Suspect]
     Active Substance: LANSOPRAZOLE
     Dosage: 10 MILLIGRAM, QD
     Route: 065
     Dates: start: 20180207, end: 20180218
  13. LANSOPRAZOLE [Suspect]
     Active Substance: LANSOPRAZOLE
     Dosage: 5 MILLIGRAM, QD
     Route: 065
     Dates: start: 20180207, end: 20180207
  14. LANSOPRAZOLE [Suspect]
     Active Substance: LANSOPRAZOLE
     Dosage: 10 MILLIGRAM, QD
     Route: 065
     Dates: end: 20180218
  15. LANSOPRAZOLE [Suspect]
     Active Substance: LANSOPRAZOLE
     Dosage: 30 MILLIGRAM, QD
     Route: 065
     Dates: end: 20180218
  16. LANSOPRAZOLE [Suspect]
     Active Substance: LANSOPRAZOLE
     Dosage: 10 MILLIGRAM, QD
     Route: 065
     Dates: end: 20180218
  17. LANSOPRAZOLE [Suspect]
     Active Substance: LANSOPRAZOLE
     Dosage: 5 MILLIGRAM, QD
     Route: 065
     Dates: end: 20180218
  18. LANSOPRAZOLE [Suspect]
     Active Substance: LANSOPRAZOLE
     Dosage: 5 MILLIGRAM, QD
     Route: 065
     Dates: end: 20180218
  19. LANSOPRAZOLE [Suspect]
     Active Substance: LANSOPRAZOLE
     Dosage: 10 MILLIGRAM, QD
     Route: 065
     Dates: end: 20180218
  20. LANSOPRAZOLE [Suspect]
     Active Substance: LANSOPRAZOLE
     Dosage: 30 MILLIGRAM, QD
     Route: 065
     Dates: end: 20180218
  21. LANSOPRAZOLE [Suspect]
     Active Substance: LANSOPRAZOLE
     Dosage: 10 MILLIGRAM, QD
     Route: 065
     Dates: end: 20180218
  22. LANSOPRAZOLE [Suspect]
     Active Substance: LANSOPRAZOLE
     Dosage: 10 MILLIGRAM, QD
     Route: 065
     Dates: end: 20180218
  23. LANSOPRAZOLE [Suspect]
     Active Substance: LANSOPRAZOLE
     Dosage: 10 MILLIGRAM, QD
     Route: 065
     Dates: end: 20180218
  24. CANDESARTAN CILEXETIL\HYDROCHLOROTHIAZIDE [Suspect]
     Active Substance: CANDESARTAN CILEXETIL\HYDROCHLOROTHIAZIDE
     Indication: Product used for unknown indication
     Dosage: 2 MILLIGRAM, QD
     Route: 048
  25. CANDESARTAN CILEXETIL\HYDROCHLOROTHIAZIDE [Suspect]
     Active Substance: CANDESARTAN CILEXETIL\HYDROCHLOROTHIAZIDE
     Dosage: 2 MILLIGRAM, QD
     Route: 048
  26. CANDESARTAN CILEXETIL\HYDROCHLOROTHIAZIDE [Suspect]
     Active Substance: CANDESARTAN CILEXETIL\HYDROCHLOROTHIAZIDE
     Dosage: UNK
     Route: 048
  27. IMDUR [Suspect]
     Active Substance: ISOSORBIDE MONONITRATE
     Indication: Product used for unknown indication
     Dosage: 50 MILLIGRAM, QD
     Route: 048
  28. IMDUR [Suspect]
     Active Substance: ISOSORBIDE MONONITRATE
     Dosage: 50 MILLIGRAM, QD
     Route: 065
  29. IMDUR [Suspect]
     Active Substance: ISOSORBIDE MONONITRATE
     Dosage: UNK
     Route: 048
  30. IMDUR [Suspect]
     Active Substance: ISOSORBIDE MONONITRATE
     Dosage: 50 MILLIGRAM, QD
     Route: 048
  31. IMDUR [Suspect]
     Active Substance: ISOSORBIDE MONONITRATE
     Dosage: 50 MILLIGRAM, QD
     Route: 065
  32. IMDUR [Suspect]
     Active Substance: ISOSORBIDE MONONITRATE
     Dosage: UNK
     Route: 048
  33. IMDUR [Suspect]
     Active Substance: ISOSORBIDE MONONITRATE
     Dosage: UNK
     Route: 048
  34. IMDUR [Suspect]
     Active Substance: ISOSORBIDE MONONITRATE
     Dosage: UNK
     Route: 048
  35. IMDUR [Suspect]
     Active Substance: ISOSORBIDE MONONITRATE
     Dosage: 50 MILLIGRAM, QD
     Route: 065
  36. IMDUR [Suspect]
     Active Substance: ISOSORBIDE MONONITRATE
     Dosage: 50 MILLIGRAM, QD
     Route: 048
  37. CETIRIZINE HYDROCHLORIDE [Suspect]
     Active Substance: CETIRIZINE HYDROCHLORIDE
     Indication: Product used for unknown indication
     Dosage: 10 MILLIGRAM, QD
     Route: 048
  38. CETIRIZINE HYDROCHLORIDE [Suspect]
     Active Substance: CETIRIZINE HYDROCHLORIDE
     Dosage: 10 MILLIGRAM, QD
     Route: 065
  39. CETIRIZINE HYDROCHLORIDE [Suspect]
     Active Substance: CETIRIZINE HYDROCHLORIDE
     Dosage: 10 MILLIGRAM, QD
     Route: 065
  40. CETIRIZINE HYDROCHLORIDE [Suspect]
     Active Substance: CETIRIZINE HYDROCHLORIDE
     Dosage: 10 MILLIGRAM, QD
     Route: 065
  41. CETIRIZINE HYDROCHLORIDE [Suspect]
     Active Substance: CETIRIZINE HYDROCHLORIDE
     Dosage: 10 MILLIGRAM, QD
     Route: 065
  42. CETIRIZINE HYDROCHLORIDE [Suspect]
     Active Substance: CETIRIZINE HYDROCHLORIDE
     Dosage: 10 MILLIGRAM, QD
     Route: 065
  43. CETIRIZINE HYDROCHLORIDE [Suspect]
     Active Substance: CETIRIZINE HYDROCHLORIDE
     Dosage: 10 MILLIGRAM, QD
     Route: 065
  44. CETIRIZINE HYDROCHLORIDE [Suspect]
     Active Substance: CETIRIZINE HYDROCHLORIDE
     Dosage: 10 MILLIGRAM, QD
     Route: 065
  45. HYDROCHLOROTHIAZIDE [Suspect]
     Active Substance: HYDROCHLOROTHIAZIDE
     Indication: Cerebrovascular accident prophylaxis
     Dosage: 2 MILLIGRAM, QD
     Route: 048
  46. HYDROCHLOROTHIAZIDE [Suspect]
     Active Substance: HYDROCHLOROTHIAZIDE
     Dosage: 2 MILLIGRAM, QD
     Route: 048
  47. HYDROCHLOROTHIAZIDE [Suspect]
     Active Substance: HYDROCHLOROTHIAZIDE
     Dosage: 2 MILLIGRAM, QD
     Route: 048
  48. HYDROCHLOROTHIAZIDE [Suspect]
     Active Substance: HYDROCHLOROTHIAZIDE
     Dosage: 2 MILLIGRAM, QD
     Route: 048
  49. HYDROCHLOROTHIAZIDE [Suspect]
     Active Substance: HYDROCHLOROTHIAZIDE
     Dosage: UNK UNK, QD
     Route: 048
  50. HYDROCHLOROTHIAZIDE [Suspect]
     Active Substance: HYDROCHLOROTHIAZIDE
     Dosage: 10 MILLIGRAM
     Route: 048
  51. HYDROCHLOROTHIAZIDE [Suspect]
     Active Substance: HYDROCHLOROTHIAZIDE
     Dosage: 10 MILLIGRAM
     Route: 048
  52. HYDROCHLOROTHIAZIDE [Suspect]
     Active Substance: HYDROCHLOROTHIAZIDE
     Dosage: UNK UNK, QD
     Route: 048
  53. HYDROCHLOROTHIAZIDE [Suspect]
     Active Substance: HYDROCHLOROTHIAZIDE
     Dosage: UNK UNK, QD
     Route: 048
  54. HYDROCHLOROTHIAZIDE [Suspect]
     Active Substance: HYDROCHLOROTHIAZIDE
     Dosage: UNK UNK, QD
     Route: 048
  55. ISOSORBIDE DINITRATE [Suspect]
     Active Substance: ISOSORBIDE DINITRATE
     Indication: Product used for unknown indication
     Dosage: 50 MILLIGRAM, QD
     Route: 048
  56. ISOSORBIDE DINITRATE [Suspect]
     Active Substance: ISOSORBIDE DINITRATE
     Dosage: 50 MILLIGRAM, QD
     Route: 048
  57. ISOSORBIDE DINITRATE [Suspect]
     Active Substance: ISOSORBIDE DINITRATE
     Dosage: 50 MILLIGRAM, QD
     Route: 048
  58. ISOSORBIDE DINITRATE [Suspect]
     Active Substance: ISOSORBIDE DINITRATE
     Dosage: 50 MILLIGRAM, QD
     Route: 048
  59. ISOSORBIDE DINITRATE [Suspect]
     Active Substance: ISOSORBIDE DINITRATE
     Dosage: 50 MILLIGRAM, QD
     Route: 048
  60. ISOSORBIDE DINITRATE [Suspect]
     Active Substance: ISOSORBIDE DINITRATE
     Dosage: 50 MILLIGRAM, QD
     Route: 048
  61. ISOSORBIDE DINITRATE [Suspect]
     Active Substance: ISOSORBIDE DINITRATE
     Dosage: UNK
     Route: 048
  62. ISOSORBIDE DINITRATE [Suspect]
     Active Substance: ISOSORBIDE DINITRATE
     Dosage: 50 MILLIGRAM, QD
     Route: 065
  63. ISOSORBIDE DINITRATE [Suspect]
     Active Substance: ISOSORBIDE DINITRATE
     Dosage: 50 MILLIGRAM, QD
     Route: 048
  64. ISOSORBIDE MONONITRATE [Suspect]
     Active Substance: ISOSORBIDE MONONITRATE
     Indication: Product used for unknown indication
     Dosage: 50 MILLIGRAM, QD
     Route: 048
  65. ISOSORBIDE MONONITRATE [Suspect]
     Active Substance: ISOSORBIDE MONONITRATE
     Dosage: UNK
     Route: 048
  66. ISOSORBIDE MONONITRATE [Suspect]
     Active Substance: ISOSORBIDE MONONITRATE
     Dosage: 50 MILLIGRAM, QD
     Route: 048
  67. ISOSORBIDE MONONITRATE [Suspect]
     Active Substance: ISOSORBIDE MONONITRATE
     Dosage: 50 MILLIGRAM, QD
     Route: 048
  68. ISOSORBIDE MONONITRATE [Suspect]
     Active Substance: ISOSORBIDE MONONITRATE
     Dosage: 50 MILLIGRAM, QD
     Route: 048
  69. ISOSORBIDE MONONITRATE [Suspect]
     Active Substance: ISOSORBIDE MONONITRATE
     Dosage: UNK
     Route: 048
  70. ISOSORBIDE MONONITRATE [Suspect]
     Active Substance: ISOSORBIDE MONONITRATE
     Dosage: UNK
     Route: 048
  71. ISOSORBIDE MONONITRATE [Suspect]
     Active Substance: ISOSORBIDE MONONITRATE
     Dosage: 50 MILLIGRAM, QD
     Route: 048
  72. ISOSORBIDE MONONITRATE [Suspect]
     Active Substance: ISOSORBIDE MONONITRATE
     Dosage: 50 MILLIGRAM, QD
     Route: 048
  73. ISOSORBIDE MONONITRATE [Suspect]
     Active Substance: ISOSORBIDE MONONITRATE
     Dosage: 50 MILLIGRAM, QD
     Route: 048
  74. ISOSORBIDE MONONITRATE [Suspect]
     Active Substance: ISOSORBIDE MONONITRATE
     Dosage: 50 MILLIGRAM, QD
     Route: 048
  75. ISOSORBIDE MONONITRATE [Suspect]
     Active Substance: ISOSORBIDE MONONITRATE
     Dosage: 50 MILLIGRAM, QD
     Route: 048
  76. ISOSORBIDE MONONITRATE [Suspect]
     Active Substance: ISOSORBIDE MONONITRATE
     Dosage: UNK
     Route: 048
  77. DIGOXIN [Suspect]
     Active Substance: DIGOXIN
     Indication: Cerebrovascular accident prophylaxis
     Dosage: 62.5 MICROGRAM, QD
     Route: 065
  78. DIGOXIN [Suspect]
     Active Substance: DIGOXIN
     Dosage: 62.5 GRAM, QD
     Route: 065
  79. DIGOXIN [Suspect]
     Active Substance: DIGOXIN
     Dosage: 62.5 MICROGRAM, QD
     Route: 065
  80. DIGOXIN [Suspect]
     Active Substance: DIGOXIN
     Dosage: 63 MICROGRAM, QD
     Route: 065
  81. DIGOXIN [Suspect]
     Active Substance: DIGOXIN
     Dosage: 1 MICROGRAM, QD
     Route: 065
  82. DIGOXIN [Suspect]
     Active Substance: DIGOXIN
     Dosage: 4 MICROGRAM, QD
     Route: 065
  83. DIGOXIN [Suspect]
     Active Substance: DIGOXIN
     Dosage: 62 MICROGRAM, QD
     Route: 065
  84. DIGOXIN [Suspect]
     Active Substance: DIGOXIN
     Dosage: 50 MICROGRAM, QD
     Route: 065
  85. LEVOTHYROXINE SODIUM [Suspect]
     Active Substance: LEVOTHYROXINE SODIUM
     Indication: Product used for unknown indication
     Dosage: 50 GRAM, QD
     Route: 048
  86. LEVOTHYROXINE SODIUM [Suspect]
     Active Substance: LEVOTHYROXINE SODIUM
     Dosage: 50 MILLIGRAM, QD
     Route: 065
  87. LEVOTHYROXINE SODIUM [Suspect]
     Active Substance: LEVOTHYROXINE SODIUM
     Dosage: 50 MICROGRAM, QD
     Route: 065
  88. LEVOTHYROXINE SODIUM [Suspect]
     Active Substance: LEVOTHYROXINE SODIUM
     Dosage: 50 GRAM, QD
     Route: 066
  89. LEVOTHYROXINE SODIUM [Suspect]
     Active Substance: LEVOTHYROXINE SODIUM
     Dosage: 125 MICROGRAM, QD
     Route: 048
  90. LEVOTHYROXINE SODIUM [Suspect]
     Active Substance: LEVOTHYROXINE SODIUM
     Dosage: 1 DOSAGE FORM, QD
     Route: 065
  91. LEVOTHYROXINE SODIUM [Suspect]
     Active Substance: LEVOTHYROXINE SODIUM
     Dosage: 12 MICROGRAM, QD
     Route: 048
  92. LEVOTHYROXINE SODIUM [Suspect]
     Active Substance: LEVOTHYROXINE SODIUM
     Dosage: 1 DOSAGE FORM
     Route: 065
  93. LEVOTHYROXINE SODIUM [Suspect]
     Active Substance: LEVOTHYROXINE SODIUM
     Dosage: 125 MICROGRAM, QD
     Route: 065
  94. LEVOTHYROXINE SODIUM [Suspect]
     Active Substance: LEVOTHYROXINE SODIUM
     Dosage: 50 MICROGRAM, QD
     Route: 066
  95. LEVOTHYROXINE SODIUM [Suspect]
     Active Substance: LEVOTHYROXINE SODIUM
     Dosage: 50 MILLIGRAM, QD
     Route: 065
  96. LEVOTHYROXINE SODIUM [Suspect]
     Active Substance: LEVOTHYROXINE SODIUM
     Dosage: UNK UNK, QD
     Route: 065
  97. LEVOTHYROXINE SODIUM [Suspect]
     Active Substance: LEVOTHYROXINE SODIUM
     Dosage: UNK UNK, QD
     Route: 065
  98. LEVOTHYROXINE SODIUM [Suspect]
     Active Substance: LEVOTHYROXINE SODIUM
     Dosage: 10 MILLIGRAM, QD
     Route: 065
  99. LEVOTHYROXINE SODIUM [Suspect]
     Active Substance: LEVOTHYROXINE SODIUM
     Dosage: 30 MILLIGRAM, QD
     Route: 065
  100. LEVOTHYROXINE SODIUM [Suspect]
     Active Substance: LEVOTHYROXINE SODIUM
     Dosage: 50 MILLIGRAM, QD
     Route: 065
  101. LEVOTHYROXINE SODIUM [Suspect]
     Active Substance: LEVOTHYROXINE SODIUM
     Dosage: 12 MILLIGRAM, QD
     Route: 065
  102. LEVOTHYROXINE SODIUM [Suspect]
     Active Substance: LEVOTHYROXINE SODIUM
     Dosage: 1 DOSAGE FORM
     Route: 065
  103. LINAGLIPTIN [Suspect]
     Active Substance: LINAGLIPTIN
     Indication: Product used for unknown indication
     Dosage: 5 MILLIGRAM, QD
     Route: 065
  104. LINAGLIPTIN [Suspect]
     Active Substance: LINAGLIPTIN
     Dosage: UNK
     Route: 065
  105. LINAGLIPTIN [Suspect]
     Active Substance: LINAGLIPTIN
     Dosage: 5 MILLIGRAM, QD
     Route: 065
  106. LINAGLIPTIN [Suspect]
     Active Substance: LINAGLIPTIN
     Dosage: 5 MILLIGRAM, QD
     Route: 065
  107. LINAGLIPTIN [Suspect]
     Active Substance: LINAGLIPTIN
     Dosage: 5 MILLIGRAM, QD
     Route: 065
  108. LINAGLIPTIN [Suspect]
     Active Substance: LINAGLIPTIN
     Dosage: 5 MILLIGRAM, QD
     Route: 065
  109. SIMVASTATIN [Suspect]
     Active Substance: SIMVASTATIN
     Indication: Product used for unknown indication
     Dosage: 40 MILLIGRAM, QD
     Route: 048
  110. SIMVASTATIN [Suspect]
     Active Substance: SIMVASTATIN
     Dosage: UNK
     Route: 048
  111. SIMVASTATIN [Suspect]
     Active Substance: SIMVASTATIN
     Dosage: 40 MILLIGRAM, QD
     Route: 065
  112. SIMVASTATIN [Suspect]
     Active Substance: SIMVASTATIN
     Dosage: 40 MILLIGRAM, QD
     Route: 065
  113. SIMVASTATIN [Suspect]
     Active Substance: SIMVASTATIN
     Dosage: 40 MILLIGRAM, QD
     Route: 065
  114. SIMVASTATIN [Suspect]
     Active Substance: SIMVASTATIN
     Dosage: 40 MILLIGRAM, QD
     Route: 048
  115. SIMVASTATIN [Suspect]
     Active Substance: SIMVASTATIN
     Dosage: 40 MILLIGRAM, QD
     Route: 065
  116. SIMVASTATIN [Suspect]
     Active Substance: SIMVASTATIN
     Dosage: 40 MILLIGRAM, QD
     Route: 065
  117. SIMVASTATIN [Suspect]
     Active Substance: SIMVASTATIN
     Dosage: 40 MILLIGRAM, QD
     Route: 065
  118. SIMVASTATIN [Suspect]
     Active Substance: SIMVASTATIN
     Dosage: 40 MILLIGRAM, QD
     Route: 065
  119. APIXABAN [Suspect]
     Active Substance: APIXABAN
     Indication: Cerebrovascular accident prophylaxis
     Dosage: 10 MILLIGRAM, QD
     Route: 042
     Dates: start: 20180207, end: 20180207
  120. APIXABAN [Suspect]
     Active Substance: APIXABAN
     Indication: Atrial fibrillation
     Dosage: 5 MILLIGRAM, QD
     Route: 042
     Dates: start: 20180207, end: 20180207
  121. APIXABAN [Suspect]
     Active Substance: APIXABAN
     Dosage: 10 MILLIGRAM, QD
     Route: 042
     Dates: end: 20180207
  122. APIXABAN [Suspect]
     Active Substance: APIXABAN
     Dosage: 10 MILLIGRAM, QD
     Route: 065
     Dates: start: 20180207
  123. APIXABAN [Suspect]
     Active Substance: APIXABAN
     Dosage: 5 MILLIGRAM, QD
     Route: 042
     Dates: end: 20180207
  124. APIXABAN [Suspect]
     Active Substance: APIXABAN
     Dosage: 5 MILLIGRAM, QD
     Route: 065
     Dates: start: 20180207, end: 20180207
  125. APIXABAN [Suspect]
     Active Substance: APIXABAN
     Dosage: 5 MILLIGRAM, QD
     Route: 048
     Dates: end: 20180207
  126. APIXABAN [Suspect]
     Active Substance: APIXABAN
     Dosage: 5 MILLIGRAM, QD
     Route: 065
  127. APIXABAN [Suspect]
     Active Substance: APIXABAN
     Dosage: 5 MILLIGRAM, QD
     Route: 042
     Dates: start: 20180207, end: 20180207
  128. APIXABAN [Suspect]
     Active Substance: APIXABAN
     Dosage: 10 MILLIGRAM, QD
     Route: 065
     Dates: end: 20180207
  129. APIXABAN [Suspect]
     Active Substance: APIXABAN
     Dosage: 5 MILLIGRAM, QD
     Route: 042
  130. APIXABAN [Suspect]
     Active Substance: APIXABAN
     Dosage: UNK
     Route: 065
     Dates: start: 20180207, end: 20180207
  131. APIXABAN [Suspect]
     Active Substance: APIXABAN
     Dosage: 10 MILLIGRAM, QD
     Route: 042
     Dates: start: 20180207, end: 20180207
  132. APIXABAN [Suspect]
     Active Substance: APIXABAN
     Dosage: UNK
     Route: 065
  133. APIXABAN [Suspect]
     Active Substance: APIXABAN
     Dosage: 5 MILLIGRAM, QD
     Route: 065
     Dates: start: 20180207
  134. APIXABAN [Suspect]
     Active Substance: APIXABAN
     Dosage: 5 MILLIGRAM, QD
     Route: 048
     Dates: start: 20180207
  135. APIXABAN [Suspect]
     Active Substance: APIXABAN
     Dosage: 5 MILLIGRAM, QD
     Route: 042
     Dates: start: 20180207
  136. APIXABAN [Suspect]
     Active Substance: APIXABAN
     Dosage: 5 MILLIGRAM, QD
     Route: 065
     Dates: end: 20180207
  137. BISOPROLOL FUMARATE [Suspect]
     Active Substance: BISOPROLOL FUMARATE
     Indication: Product used for unknown indication
     Dosage: 10 MILLIGRAM, QD
     Route: 048
     Dates: start: 20180207, end: 20180207
  138. BISOPROLOL FUMARATE [Suspect]
     Active Substance: BISOPROLOL FUMARATE
     Indication: Cerebrovascular accident prophylaxis
     Dosage: 5 MILLIGRAM, QD
     Route: 048
     Dates: start: 20180207, end: 20180207
  139. BISOPROLOL FUMARATE [Suspect]
     Active Substance: BISOPROLOL FUMARATE
     Dosage: 5 MILLIGRAM, QD
     Route: 065
     Dates: end: 20180207
  140. BISOPROLOL FUMARATE [Suspect]
     Active Substance: BISOPROLOL FUMARATE
     Dosage: 5 MILLIGRAM, QD
     Route: 065
     Dates: start: 20180207
  141. BISOPROLOL FUMARATE [Suspect]
     Active Substance: BISOPROLOL FUMARATE
     Dosage: 10 MILLIGRAM, QD
     Route: 048
  142. BISOPROLOL FUMARATE [Suspect]
     Active Substance: BISOPROLOL FUMARATE
     Dosage: 5 MILLIGRAM, QD
     Route: 048
  143. BISOPROLOL FUMARATE [Suspect]
     Active Substance: BISOPROLOL FUMARATE
     Dosage: 5 MILLIGRAM, QD
     Route: 048
     Dates: start: 20180207, end: 20180207
  144. BISOPROLOL FUMARATE [Suspect]
     Active Substance: BISOPROLOL FUMARATE
     Dosage: 5 MILLIGRAM, QD
     Route: 048
     Dates: start: 20180207, end: 20180207
  145. BISOPROLOL FUMARATE [Suspect]
     Active Substance: BISOPROLOL FUMARATE
     Dosage: 10 MILLIGRAM, QD
     Route: 048
  146. BISOPROLOL FUMARATE [Suspect]
     Active Substance: BISOPROLOL FUMARATE
     Dosage: 10 MILLIGRAM, QD
     Route: 048
  147. BISOPROLOL FUMARATE [Suspect]
     Active Substance: BISOPROLOL FUMARATE
     Dosage: 10 MILLIGRAM, QD
     Route: 048
  148. BISOPROLOL FUMARATE [Suspect]
     Active Substance: BISOPROLOL FUMARATE
     Dosage: 10 MILLIGRAM, QD
     Route: 048
  149. BISOPROLOL FUMARATE [Suspect]
     Active Substance: BISOPROLOL FUMARATE
     Dosage: 10 MILLIGRAM, QD
     Route: 065
  150. BISOPROLOL FUMARATE [Suspect]
     Active Substance: BISOPROLOL FUMARATE
     Dosage: 5 MILLIGRAM, QD
     Route: 048
     Dates: start: 20180207
  151. LINAGLIPTIN [Suspect]
     Active Substance: LINAGLIPTIN
     Indication: Product used for unknown indication
     Dosage: 5 MILLIGRAM, QD
     Route: 065
  152. SIMVASTATIN [Suspect]
     Active Substance: SIMVASTATIN
     Indication: Product used for unknown indication
     Dosage: UNK
     Route: 065
  153. SIMVASTATIN [Suspect]
     Active Substance: SIMVASTATIN
     Dosage: 40 MILLIGRAM, QD
     Route: 065
  154. SIMVASTATIN [Suspect]
     Active Substance: SIMVASTATIN
     Dosage: 40 MILLIGRAM, QD
     Route: 065
  155. SIMVASTATIN [Suspect]
     Active Substance: SIMVASTATIN
     Dosage: 40 MILLIGRAM, QD
     Route: 065
  156. SIMVASTATIN [Suspect]
     Active Substance: SIMVASTATIN
     Dosage: 40 MILLIGRAM
     Route: 065
  157. SIMVASTATIN [Suspect]
     Active Substance: SIMVASTATIN
     Indication: Product used for unknown indication
     Dosage: 40 MILLIGRAM, QD
     Route: 065
  158. SIMVASTATIN [Suspect]
     Active Substance: SIMVASTATIN
     Dosage: UNK
     Route: 065
  159. SIMVASTATIN [Suspect]
     Active Substance: SIMVASTATIN
     Dosage: 40 MILLIGRAM, QD
     Route: 065
  160. SIMVASTATIN [Suspect]
     Active Substance: SIMVASTATIN
     Dosage: 40 MILLIGRAM, QD
     Route: 065
  161. SIMVASTATIN [Suspect]
     Active Substance: SIMVASTATIN
     Dosage: UNK
     Route: 065
  162. SIMVASTATIN [Suspect]
     Active Substance: SIMVASTATIN
     Dosage: 40 MILLIGRAM, QD
     Route: 048
  163. SIMVASTATIN [Suspect]
     Active Substance: SIMVASTATIN
     Dosage: 40 MILLIGRAM, QD
     Route: 048
  164. SIMVASTATIN [Suspect]
     Active Substance: SIMVASTATIN
     Dosage: 40 MILLIGRAM, QD
     Route: 065
  165. SIMVASTATIN [Suspect]
     Active Substance: SIMVASTATIN
     Dosage: 40 MILLIGRAM, QD
     Route: 065
  166. SIMVASTATIN [Suspect]
     Active Substance: SIMVASTATIN
     Dosage: 40 MILLIGRAM, QD
     Route: 065

REACTIONS (4)
  - Subarachnoid haemorrhage [Recovered/Resolved with Sequelae]
  - Off label use [Recovered/Resolved with Sequelae]
  - Intentional product misuse [Unknown]
  - Intentional product use issue [Unknown]
